FAERS Safety Report 18286586 (Version 2)
Quarter: 2020Q3

REPORT INFORMATION
  Report Type: Spontaneous
  Country: DK (occurrence: DK)
  Receive Date: 20200921
  Receipt Date: 20200924
  Transmission Date: 20201103
  Serious: Yes (Other)
  Sender: FDA-Public Use
  Company Number: DK-ABBVIE-20P-044-3573087-00

PATIENT
  Age: 49 Year
  Sex: Male

DRUGS (3)
  1. ANDROCUR [Suspect]
     Active Substance: CYPROTERONE ACETATE
     Indication: HYPERSEXUALITY
     Dosage: UNK
     Route: 065
     Dates: start: 20020919, end: 2010
  2. PROCRIN [Suspect]
     Active Substance: LEUPROLIDE ACETATE
     Indication: HYPERSEXUALITY
     Dosage: 11.25 MILLIGRAM
     Route: 058
     Dates: start: 20020919, end: 2012
  3. IBUPROFEN. [Concomitant]
     Active Substance: IBUPROFEN
     Indication: PRODUCT USED FOR UNKNOWN INDICATION
     Dosage: UNK

REACTIONS (17)
  - Alopecia [Unknown]
  - Memory impairment [Unknown]
  - Dyspnoea exertional [Unknown]
  - Osteoporotic fracture [Unknown]
  - Mood swings [Unknown]
  - Muscular weakness [Unknown]
  - Dizziness [Unknown]
  - Bone decalcification [Unknown]
  - Depressed level of consciousness [Unknown]
  - Bone pain [Unknown]
  - Feeling of body temperature change [Unknown]
  - Suicidal ideation [Unknown]
  - Back pain [Unknown]
  - Anxiety [Unknown]
  - Suicide attempt [Unknown]
  - Deafness unilateral [Unknown]
  - Headache [Unknown]

NARRATIVE: CASE EVENT DATE: 20100917
